FAERS Safety Report 9439027 (Version 2)
Quarter: 2013Q4

REPORT INFORMATION
  Report Type: Spontaneous
  Country: GB (occurrence: GB)
  Receive Date: 20130802
  Receipt Date: 20131108
  Transmission Date: 20140711
  Serious: Yes (Other)
  Sender: FDA-Public Use
  Company Number: PHHY2013GB080434

PATIENT
  Age: 70 Year
  Sex: Male
  Weight: 83.5 kg

DRUGS (11)
  1. OMEPRAZOLE [Suspect]
     Indication: PROPHYLAXIS AGAINST GASTROINTESTINAL ULCER
     Dosage: 20 MG, QD
     Dates: start: 20130702, end: 20130706
  2. WOCKHARDT UK NAPROXEN [Suspect]
     Indication: OSTEOARTHRITIS
     Dosage: TOOK HALF A TABLET TWICE DAILY ON FIRST COUPLE OF DAYS; 500 MG BID
     Dates: start: 20130702, end: 20130705
  3. EPLERENONE [Concomitant]
     Indication: BLOOD PRESSURE
     Dosage: 50 MG, QD
  4. DILTIAZEM [Concomitant]
     Indication: BLOOD PRESSURE
     Dosage: 200 MG, QD
  5. JANUVIA [Concomitant]
     Indication: DIABETES MELLITUS
     Dosage: 100 MG, QD
  6. ROSUVASTATIN [Concomitant]
     Indication: BLOOD CHOLESTEROL INCREASED
     Dosage: 5 MG, QD
  7. CLOPIDOGREL [Concomitant]
     Dosage: 75 MG, QD
  8. OMACOR [Concomitant]
     Indication: BLOOD CHOLESTEROL INCREASED
     Dosage: 1000 MG, BID
  9. OMACOR [Concomitant]
  10. COLESEVELAM [Concomitant]
     Dosage: 625 MG, BID
  11. TESTOGEL [Concomitant]
     Dosage: 5 G, QD

REACTIONS (8)
  - Feeling abnormal [Not Recovered/Not Resolved]
  - Abdominal discomfort [Not Recovered/Not Resolved]
  - Non-cardiac chest pain [Not Recovered/Not Resolved]
  - Discomfort [Not Recovered/Not Resolved]
  - Activities of daily living impaired [Not Recovered/Not Resolved]
  - Inflammation [Not Recovered/Not Resolved]
  - Abdominal pain [Not Recovered/Not Resolved]
  - Malaise [Not Recovered/Not Resolved]
